FAERS Safety Report 17620965 (Version 2)
Quarter: 2020Q2

REPORT INFORMATION
  Report Type: Spontaneous
  Country: US (occurrence: US)
  Receive Date: 20200403
  Receipt Date: 20200507
  Transmission Date: 20200713
  Serious: Yes (Other)
  Sender: FDA-Public Use
  Company Number: US-PFIZER INC-2020136087

PATIENT
  Age: 69 Year
  Sex: Female
  Weight: 59.42 kg

DRUGS (7)
  1. PREMARIN [Suspect]
     Active Substance: ESTROGENS, CONJUGATED
     Indication: VULVOVAGINAL DRYNESS
     Dosage: 1 G, 3 TIMES A WEEK
     Route: 067
     Dates: start: 20190625
  2. PREMARIN [Suspect]
     Active Substance: ESTROGENS, CONJUGATED
     Dosage: 0.5 G (1/4 APPLICATOR FULL VAGINALLY (0.5G) EVERY MONDAY, WEDNESDAY, AND FRIDAY )
     Route: 067
     Dates: end: 20190816
  3. ESTRACE [Concomitant]
     Active Substance: ESTRADIOL
     Dosage: 1 G, [0.01%, APPLY 1G 3 TIMES A WEEK ]
     Dates: start: 20190816
  4. SYNTHROID [Concomitant]
     Active Substance: LEVOTHYROXINE SODIUM
     Indication: THYROID DISORDER
     Dosage: 75 UG, DAILY
  5. SIMVASTATIN. [Concomitant]
     Active Substance: SIMVASTATIN
     Indication: BLOOD CHOLESTEROL
     Dosage: 10 MG, DAILY
  6. ESTRACE [Concomitant]
     Active Substance: ESTRADIOL
     Indication: VULVOVAGINAL DRYNESS
     Dosage: 1 G, [0.01%, APPLY 1G 3 TIMES A WEEK ]
     Dates: start: 2008, end: 20190625
  7. WARFARIN [Concomitant]
     Active Substance: WARFARIN
     Indication: ANTICOAGULANT THERAPY
     Dosage: 1 DF, DAILY
     Dates: end: 201911

REACTIONS (6)
  - Therapeutic response unexpected [Unknown]
  - Pre-existing condition improved [Unknown]
  - Off label use [Unknown]
  - Product prescribing error [Unknown]
  - Atrial fibrillation [Unknown]
  - Condition aggravated [Unknown]

NARRATIVE: CASE EVENT DATE: 201906
